FAERS Safety Report 9276428 (Version 4)
Quarter: 2013Q3

REPORT INFORMATION
  Report Type: Spontaneous
  Country: US (occurrence: US)
  Receive Date: 20130507
  Receipt Date: 20130913
  Transmission Date: 20140515
  Serious: Yes (Hospitalization, Other)
  Sender: FDA-Public Use
  Company Number: US-ELI_LILLY_AND_COMPANY-US201305000211

PATIENT
  Age: 57 Year
  Sex: Female

DRUGS (11)
  1. ADCIRCA [Suspect]
     Indication: PULMONARY HYPERTENSION
     Dosage: 40 MG, QD
     Route: 048
  2. TRAMADOL [Concomitant]
     Dosage: UNK, UNKNOWN
     Route: 065
  3. LASIX [Concomitant]
     Dosage: UNK, UNKNOWN
     Route: 065
  4. CARVEDILOL [Concomitant]
     Dosage: UNK, UNKNOWN
     Route: 065
  5. LISINOPRIL [Concomitant]
     Dosage: UNK, UNKNOWN
     Route: 065
  6. ASPIRIN [Concomitant]
     Dosage: UNK, UNKNOWN
     Route: 065
  7. PRAVASTATIN [Concomitant]
     Dosage: UNK, UNKNOWN
     Route: 065
  8. FAMOTIDINE [Concomitant]
     Dosage: UNK, UNKNOWN
     Route: 065
  9. PROVENTIL                               /USA/ [Concomitant]
     Dosage: UNK, UNKNOWN
     Route: 065
  10. TIOTROPIUM [Concomitant]
     Dosage: UNK, UNKNOWN
     Route: 065
  11. LORATADINE [Concomitant]
     Dosage: UNK, UNKNOWN
     Route: 065

REACTIONS (4)
  - Biliary colic [Unknown]
  - Urinary tract infection [Unknown]
  - Cholecystitis infective [Unknown]
  - Adenocarcinoma [Unknown]
